FAERS Safety Report 6772682-0 (Version None)
Quarter: 2010Q2

REPORT INFORMATION
  Report Type: 
  Country: None (occurrence: None)
  Receive Date: 20100616
  Receipt Date: 20090513
  Transmission Date: 20101027
  Serious: No
  Sender: FDA-Public Use
  Company Number: US-ASTRAZENECA-2009UW12450

PATIENT
  Age: 69 Year
  Sex: Female
  Weight: 95.3 kg

DRUGS (5)
  1. PULMICORT FLEXHALER [Suspect]
     Indication: ASTHMA
     Route: 055
  2. PULMICORT FLEXHALER [Suspect]
     Dosage: 1 PUFF DAILY
     Route: 055
  3. K DUR [Concomitant]
  4. WARFARIN SODIUM [Concomitant]
  5. SYNTHROID [Concomitant]

REACTIONS (4)
  - DIARRHOEA [None]
  - FLATULENCE [None]
  - GASTRIC DISORDER [None]
  - POSTNASAL DRIP [None]
